FAERS Safety Report 22620164 (Version 1)
Quarter: 2023Q2

REPORT INFORMATION
  Report Type: Report from Study
  Country: AU (occurrence: AU)
  Receive Date: 20230620
  Receipt Date: 20230620
  Transmission Date: 20230721
  Serious: Yes (Hospitalization)
  Sender: FDA-Public Use
  Company Number: AU-ABBVIE-5295774

PATIENT
  Sex: Male

DRUGS (11)
  1. CARBIDOPA\LEVODOPA [Suspect]
     Active Substance: CARBIDOPA\LEVODOPA
     Indication: Parkinson^s disease
     Dosage: CONTINUOUS RATE 3.5 MLS/HR,  EXTRA DOSE-1 HRS?MORNING DOSE 11ML AND EXTRA DOSE 1.6ML AND RUN PUMP...
     Route: 050
     Dates: start: 20190408
  2. CARBIDOPA\LEVODOPA [Suspect]
     Active Substance: CARBIDOPA\LEVODOPA
     Dosage: CONTINUOUS RATE-3.2 MLS/HR, EXTRA DOSE-1.5 HRS?MORNING DOSE 11ML AND EXTRA DOSE 1.6ML AND RUN PUM...
     Route: 050
  3. RABEPRAZOLE [Concomitant]
     Active Substance: RABEPRAZOLE
     Indication: Product used for unknown indication
     Dosage: MANE
     Route: 065
  4. DOCUSATE [Concomitant]
     Active Substance: DOCUSATE
     Indication: Product used for unknown indication
     Dosage: MIDI
     Route: 065
  5. POLYETHYLENE GLYCOLS [Concomitant]
     Active Substance: POLYETHYLENE GLYCOLS
     Indication: Product used for unknown indication
     Dosage: PRN
     Route: 065
  6. NALOXONE HYDROCHLORIDE\OXYCODONE HYDROCHLORIDE [Concomitant]
     Active Substance: NALOXONE HYDROCHLORIDE\OXYCODONE HYDROCHLORIDE
     Indication: Product used for unknown indication
     Dosage: 5/2.5 MG BD, 2.5/1.25 MG
     Route: 065
  7. BENSERAZIDE HYDROCHLORIDE\LEVODOPA [Concomitant]
     Active Substance: BENSERAZIDE HYDROCHLORIDE\LEVODOPA
     Indication: Product used for unknown indication
     Dosage: SR, 100/25MG X 2 NOCTE
     Route: 065
  8. BENSERAZIDE\LEVODOPA [Concomitant]
     Active Substance: BENSERAZIDE\LEVODOPA
     Indication: Product used for unknown indication
     Dosage: 200/50 MG , 0.5 MG ONCE
     Route: 065
  9. CITALOPRAM [Concomitant]
     Active Substance: CITALOPRAM HYDROBROMIDE
     Indication: Product used for unknown indication
     Dosage: MANE
     Route: 065
  10. OLMESARTAN [Concomitant]
     Active Substance: OLMESARTAN
     Indication: Product used for unknown indication
     Dosage: 40MG NOCTE
     Route: 065
  11. ACETAMINOPHEN [Concomitant]
     Active Substance: ACETAMINOPHEN
     Indication: Product used for unknown indication
     Route: 065

REACTIONS (20)
  - Embedded device [Unknown]
  - Device placement issue [Unknown]
  - Abnormal dreams [Unknown]
  - Hypertension [Unknown]
  - Weight decreased [Unknown]
  - Nocturia [Unknown]
  - Blood thyroid stimulating hormone decreased [Unknown]
  - Dyskinesia [Unknown]
  - On and off phenomenon [Unknown]
  - Stoma site discharge [Unknown]
  - Dementia [Unknown]
  - Incontinence [Unknown]
  - Hypotension [Unknown]
  - Vitamin D decreased [Unknown]
  - Normocytic anaemia [Unknown]
  - Cognitive disorder [Unknown]
  - Micturition urgency [Unknown]
  - Osteoarthritis [Unknown]
  - Gastrooesophageal reflux disease [Unknown]
  - Spinal stenosis [Unknown]
